FAERS Safety Report 7137005-6 (Version None)
Quarter: 2010Q4

REPORT INFORMATION
  Report Type: 
  Country: None (occurrence: None)
  Receive Date: 20101119
  Receipt Date: 20101103
  Transmission Date: 20110411
  Serious: Yes (Hospitalization)
  Sender: FDA-Public Use
  Company Number: 2010BI037708

PATIENT
  Age: 67 Year
  Sex: Male

DRUGS (11)
  1. ZEVALIN [Suspect]
     Indication: B-CELL LYMPHOMA
     Dosage: 24 MCI; IV, IV
     Route: 042
     Dates: start: 20100430, end: 20100430
  2. RITUXIMAB [Concomitant]
  3. PREDNISONE [Concomitant]
  4. CYCLOPHOSPHAMIDE [Concomitant]
  5. VINCRISTINE [Concomitant]
  6. DOXORUBICIN HCL [Concomitant]
  7. LORAZEPAM [Concomitant]
  8. PANTOPRAZOLE [Concomitant]
  9. ACETYLCYSTEINE [Concomitant]
  10. XX [Concomitant]
  11. XX [Concomitant]

REACTIONS (2)
  - RESPIRATORY FAILURE [None]
  - RESPIRATORY TRACT INFECTION [None]
